FAERS Safety Report 13693277 (Version 1)
Quarter: 2017Q2

REPORT INFORMATION
  Report Type: Spontaneous
  Country: US (occurrence: US)
  Receive Date: 20170626
  Receipt Date: 20170626
  Transmission Date: 20170830
  Serious: Yes (Other)
  Sender: FDA-Public Use
  Company Number: None

PATIENT
  Age: 60 Year
  Sex: Female
  Weight: 95.85 kg

DRUGS (2)
  1. IRBESARTAN. [Suspect]
     Active Substance: IRBESARTAN
     Indication: HYPERTENSION
     Dosage: ?          OTHER DOSE:MG;?
     Route: 048
     Dates: start: 20101231, end: 20170626
  2. AVAPRO [Concomitant]
     Active Substance: IRBESARTAN

REACTIONS (4)
  - Blood pressure systolic increased [None]
  - Dizziness [None]
  - Dyspnoea [None]
  - Syncope [None]

NARRATIVE: CASE EVENT DATE: 20131029
